FAERS Safety Report 4617292-6 (Version None)
Quarter: 2005Q1

REPORT INFORMATION
  Report Type: 
  Country: None (occurrence: None)
  Receive Date: 20050323
  Receipt Date: 20050217
  Transmission Date: 20050727
  Serious: Yes (Life-Threatening, Disabling)
  Sender: FDA-Public Use
  Company Number: US-MERCK-0502USA02315

PATIENT
  Age: 75 Year
  Sex: Male

DRUGS (1)
  1. VIOXX [Suspect]
     Indication: MONARTHRITIS
     Route: 048
     Dates: start: 20010101, end: 20030101

REACTIONS (5)
  - ANAEMIA [None]
  - HYPERTENSION [None]
  - RENAL ARTERY OCCLUSION [None]
  - RENAL IMPAIRMENT [None]
  - WEIGHT DECREASED [None]
